FAERS Safety Report 9301691 (Version 2)
Quarter: 2013Q2

REPORT INFORMATION
  Report Type: Report from Study
  Country: US (occurrence: US)
  Receive Date: 20130521
  Receipt Date: 20130627
  Transmission Date: 20140414
  Serious: Yes (Death)
  Sender: FDA-Public Use
  Company Number: US-ACTELION-A-US2013-83340

PATIENT
  Age: 64 Year
  Sex: Male

DRUGS (2)
  1. VELETRI [Suspect]
     Indication: PULMONARY ARTERIAL HYPERTENSION
     Dosage: 11.5 NG/KG, PER MIN
     Route: 042
     Dates: start: 20120405, end: 20130414
  2. SILDENAFIL [Concomitant]

REACTIONS (1)
  - Respiratory failure [Fatal]
